FAERS Safety Report 16955979 (Version 1)
Quarter: 2019Q4

REPORT INFORMATION
  Report Type: Spontaneous
  Country: JP (occurrence: JP)
  Receive Date: 20191024
  Receipt Date: 20191024
  Transmission Date: 20200122
  Serious: Yes (Hospitalization)
  Sender: FDA-Public Use
  Company Number: PHHY2019JP221765

PATIENT
  Age: 50 Year
  Sex: Female

DRUGS (6)
  1. HYCAMTIN [Suspect]
     Active Substance: TOPOTECAN HYDROCHLORIDE
     Dosage: 1.025 MG, QD
     Route: 042
     Dates: start: 20190911
  2. HYCAMTIN [Suspect]
     Active Substance: TOPOTECAN HYDROCHLORIDE
     Indication: CERVIX CARCINOMA
     Dosage: 0.75 MG/M2, QD
     Route: 042
     Dates: start: 20190911, end: 20190913
  3. PACLITAXEL. [Suspect]
     Active Substance: PACLITAXEL
     Indication: CERVIX CARCINOMA
     Dosage: 175 MG/M2, QD
     Route: 042
     Dates: start: 20190911, end: 20190911
  4. BEVACIZUMAB. [Suspect]
     Active Substance: BEVACIZUMAB
     Dosage: 645 MG
     Route: 042
     Dates: start: 20190911
  5. BEVACIZUMAB. [Suspect]
     Active Substance: BEVACIZUMAB
     Indication: CERVIX CARCINOMA
     Dosage: 15 MG/KG, QD
     Route: 042
     Dates: start: 20190911, end: 20190911
  6. PACLITAXEL. [Suspect]
     Active Substance: PACLITAXEL
     Dosage: 235 MG
     Route: 042
     Dates: start: 20190911

REACTIONS (7)
  - Inflammation [Recovering/Resolving]
  - Neutrophil count decreased [Not Recovered/Not Resolved]
  - Pyuria [Unknown]
  - Pyrexia [Unknown]
  - Hypertension [Recovered/Resolved]
  - Febrile neutropenia [Not Recovered/Not Resolved]
  - White blood cell count decreased [Not Recovered/Not Resolved]

NARRATIVE: CASE EVENT DATE: 20190918
